FAERS Safety Report 8592413-1 (Version None)
Quarter: 2012Q3

REPORT INFORMATION
  Report Type: 
  Country: None (occurrence: None)
  Receive Date: 20120814
  Receipt Date: 20120720
  Transmission Date: 20120928
  Serious: No
  Sender: FDA-Public Use
  Company Number: US-009507513-1205USA04454

PATIENT

DRUGS (13)
  1. DICLOFENAC SODIUM [Concomitant]
     Dosage: 1 DF, BID
     Route: 048
     Dates: start: 20101221
  2. JANUVIA [Suspect]
     Indication: TYPE 2 DIABETES MELLITUS
     Dosage: 100 MG, QD
     Route: 048
     Dates: start: 20120509, end: 20120518
  3. METFORMIN HCL [Concomitant]
     Dosage: 1 DF, BID
     Dates: start: 20110621
  4. SYNTHROID [Concomitant]
     Dosage: 1 DF, QD
     Route: 048
  5. FLONASE [Concomitant]
     Dosage: 2 SPRAYS IN EACH NOSTRIL, QD
     Route: 055
     Dates: start: 20120508
  6. KETOTIFEN FUMARATE [Concomitant]
     Dosage: UNK
     Dates: start: 20110120
  7. OMEPRAZOLE [Concomitant]
     Dosage: 1 DF, QD
     Route: 048
     Dates: start: 20120508
  8. ALLEGRA [Concomitant]
     Dosage: 1 DF, QD
     Route: 048
     Dates: start: 20110816
  9. ZESTORETIC [Concomitant]
     Dosage: 10-12.5 MG, QD
     Route: 048
  10. OMEGA-3-ACID ETHYL ESTERS [Concomitant]
     Dosage: 1 DF, TID
     Route: 048
  11. SIMVASTATIN [Concomitant]
     Dosage: 1 DF, HS
     Route: 048
     Dates: start: 20110512
  12. AMARYL [Concomitant]
     Dosage: 1 DF, QD
     Route: 048
  13. ERGOCALCIFEROL [Concomitant]
     Dosage: 50000 UNITS, BIW
     Route: 048
     Dates: start: 20110121

REACTIONS (3)
  - RASH [None]
  - URTICARIA [None]
  - ERYTHEMA [None]
